FAERS Safety Report 8557966-8 (Version None)
Quarter: 2012Q3

REPORT INFORMATION
  Report Type: 
  Country: None (occurrence: None)
  Receive Date: 20120801
  Receipt Date: 20120723
  Transmission Date: 20120928
  Serious: Yes (Hospitalization, Other)
  Sender: FDA-Public Use
  Company Number: US-ELI_LILLY_AND_COMPANY-US201202005281

PATIENT
  Sex: Female

DRUGS (6)
  1. FORTEO [Suspect]
     Dosage: 20 UG, QD
     Route: 065
  2. CALCIUM [Concomitant]
     Dosage: 600 MG, BID
  3. FORTEO [Suspect]
     Dosage: 20 UG, QD
     Route: 065
  4. MULTI-VITAMIN [Concomitant]
     Dosage: UNK
  5. FORTEO [Suspect]
     Indication: OSTEOPOROSIS
     Dosage: 20 UG, QD
     Route: 065
     Dates: start: 20111215
  6. FORTEO [Suspect]
     Dosage: 20 UG, QD
     Route: 065

REACTIONS (11)
  - MUSCULAR WEAKNESS [None]
  - INTENTIONAL DRUG MISUSE [None]
  - SPINAL COLUMN INJURY [None]
  - HIP FRACTURE [None]
  - MENTAL DISORDER [None]
  - PAIN IN EXTREMITY [None]
  - TREMOR [None]
  - ARTHROPATHY [None]
  - CONFUSIONAL STATE [None]
  - FALL [None]
  - MOVEMENT DISORDER [None]
